FAERS Safety Report 19907800 (Version 1)
Quarter: 2021Q3

REPORT INFORMATION
  Report Type: Report from Study
  Country: None (occurrence: AU)
  Receive Date: 20210930
  Receipt Date: 20210930
  Transmission Date: 20211014
  Serious: Yes (Hospitalization, Other)
  Sender: FDA-Public Use
  Company Number: AU-ABBVIE-21K-008-4100910-00

PATIENT
  Age: 79 Year
  Sex: Male

DRUGS (2)
  1. IMBRUVICA [Suspect]
     Active Substance: IBRUTINIB
     Indication: CHRONIC LYMPHOCYTIC LEUKAEMIA
     Route: 048
     Dates: start: 20180903
  2. IMBRUVICA [Suspect]
     Active Substance: IBRUTINIB
     Route: 048

REACTIONS (4)
  - Epistaxis [Recovered/Resolved]
  - Duodenal ulcer [Recovering/Resolving]
  - Lymphadenopathy [Not Recovered/Not Resolved]
  - Coronary artery bypass [Recovering/Resolving]

NARRATIVE: CASE EVENT DATE: 20210301
